FAERS Safety Report 24226074 (Version 4)
Quarter: 2025Q3

REPORT INFORMATION
  Report Type: Report from Study
  Country: GB (occurrence: GB)
  Receive Date: 20240820
  Receipt Date: 20250910
  Transmission Date: 20251020
  Serious: Yes (Other)
  Sender: UCB
  Company Number: GB-UCBSA-2022045780

PATIENT
  Sex: Female

DRUGS (2)
  1. CERTOLIZUMAB PEGOL [Suspect]
     Active Substance: CERTOLIZUMAB PEGOL
     Indication: Rheumatoid arthritis
     Dosage: 200 MILLIGRAM/1 ML SOLUTION, EV 2 WEEKS(QOW), 2 SYRINGE
     Route: 058
  2. SPIKEVAX [Concomitant]
     Active Substance: CX-046684
     Indication: COVID-19

REACTIONS (4)
  - Lower respiratory tract infection [Recovered/Resolved]
  - COVID-19 [Recovered/Resolved]
  - COVID-19 immunisation [Recovered/Resolved]
  - Intentional dose omission [Unknown]
